FAERS Safety Report 6397594-6 (Version None)
Quarter: 2009Q4

REPORT INFORMATION
  Report Type: 
  Country: None (occurrence: None)
  Receive Date: 20091006
  Receipt Date: 20090922
  Transmission Date: 20100525
  Serious: Yes (Hospitalization)
  Sender: FDA-Public Use
  Company Number: 2009SP001378

PATIENT
  Age: 66 Year
  Sex: Female
  Weight: 68.9 kg

DRUGS (11)
  1. OMNARIS [Suspect]
     Indication: COUGH
     Dosage: 200 UG; 1X; NASAL
     Route: 045
     Dates: start: 20090515, end: 20090515
  2. ZETIA [Concomitant]
  3. METOPROLOL [Concomitant]
  4. FISH OIL [Concomitant]
  5. LEVOTHYROXINE SODIUM [Concomitant]
  6. LOPRESSOR [Concomitant]
  7. SINGULAIR [Concomitant]
  8. OS-CAL + D [Concomitant]
  9. AMBIEN [Concomitant]
  10. PROTONIX [Concomitant]
  11. CORTICOSTEROID NOS [Concomitant]

REACTIONS (27)
  - ABDOMINAL DISCOMFORT [None]
  - ANGIOEDEMA [None]
  - BRONCHOSPASM [None]
  - CHEST PAIN [None]
  - CHOKING SENSATION [None]
  - CONDITION AGGRAVATED [None]
  - COUGH [None]
  - DECREASED APPETITE [None]
  - DRUG HYPERSENSITIVITY [None]
  - DRY THROAT [None]
  - DYSPHAGIA [None]
  - DYSPNOEA [None]
  - FATIGUE [None]
  - GASTRITIS [None]
  - GLOSSODYNIA [None]
  - INSOMNIA [None]
  - MALAISE [None]
  - NASAL OEDEMA [None]
  - NAUSEA [None]
  - OEDEMA [None]
  - OESOPHAGITIS [None]
  - ORAL CANDIDIASIS [None]
  - OROPHARYNGEAL PAIN [None]
  - RHINORRHOEA [None]
  - SINUSITIS [None]
  - THROAT TIGHTNESS [None]
  - WEIGHT DECREASED [None]
